FAERS Safety Report 8618282-9 (Version None)
Quarter: 2012Q3

REPORT INFORMATION
  Report Type: 
  Country: None (occurrence: None)
  Receive Date: 20120824
  Receipt Date: 20120814
  Transmission Date: 20120928
  Serious: Yes (Other)
  Sender: FDA-Public Use
  Company Number: US-BIOGENIDEC-2012BI014123

PATIENT
  Age: 50 Year
  Sex: Male

DRUGS (3)
  1. PREDNISONE TAB [Concomitant]
     Indication: EPILEPSY
  2. AVONEX [Suspect]
     Indication: MULTIPLE SCLEROSIS
     Route: 030
     Dates: start: 20110601
  3. METHOTREXATE [Concomitant]
     Indication: EPILEPSY

REACTIONS (3)
  - RENAL FAILURE [None]
  - DYSPHONIA [None]
  - LUNG DISORDER [None]
